FAERS Safety Report 18830897 (Version 1)
Quarter: 2021Q1

REPORT INFORMATION
  Report Type: Spontaneous
  Country: NL (occurrence: NL)
  Receive Date: 20210203
  Receipt Date: 20210203
  Transmission Date: 20210419
  Serious: Yes (Other)
  Sender: FDA-Public Use
  Company Number: NL-AUROBINDO-AUR-APL-2021-004354

PATIENT
  Sex: Male

DRUGS (8)
  1. SYNAGIS [Suspect]
     Active Substance: PALIVIZUMAB
     Dosage: 126 MILLIGRAM EVERY MONTH
     Route: 030
     Dates: start: 20201019, end: 20201019
  2. SYNAGIS [Suspect]
     Active Substance: PALIVIZUMAB
     Dosage: UNK
     Route: 030
  3. SYNAGIS [Suspect]
     Active Substance: PALIVIZUMAB
     Dosage: UNK
     Route: 030
  4. SYNAGIS [Suspect]
     Active Substance: PALIVIZUMAB
     Dosage: 132 MILLIGRAM EVERY MONTH
     Route: 030
     Dates: start: 20201116, end: 20201116
  5. SYNAGIS [Suspect]
     Active Substance: PALIVIZUMAB
     Dosage: 137 MILLIGRAM EVERY MONTH
     Route: 030
     Dates: start: 20210111, end: 20210111
  6. TRIMETHOPRIM+SULFAMETHOXAZOLE [Suspect]
     Active Substance: SULFAMETHOXAZOLE\TRIMETHOPRIM
     Indication: PRODUCT USED FOR UNKNOWN INDICATION
     Dosage: 6 MILLILITER, ONCE A DAY
     Route: 065
  7. SYNAGIS [Suspect]
     Active Substance: PALIVIZUMAB
     Indication: BRONCHOPULMONARY DYSPLASIA
     Dosage: 1 DOSAGE FORM EVERY MONTH
     Route: 030
     Dates: start: 20200131, end: 20200422
  8. SYNAGIS [Suspect]
     Active Substance: PALIVIZUMAB
     Dosage: 132 MILLIGRAM EVERY MONTH
     Route: 030
     Dates: start: 20201214, end: 20201214

REACTIONS (4)
  - Pruritus [Unknown]
  - Rash [Unknown]
  - Malaise [Recovered/Resolved]
  - Respiratory tract infection [Recovered/Resolved]

NARRATIVE: CASE EVENT DATE: 2020
